FAERS Safety Report 17394616 (Version 4)
Quarter: 2020Q2

REPORT INFORMATION
  Report Type: Spontaneous
  Country: JP (occurrence: JP)
  Receive Date: 20200210
  Receipt Date: 20200624
  Transmission Date: 20200713
  Serious: Yes (Death, Life-Threatening, Other)
  Sender: FDA-Public Use
  Company Number: JP-ROCHE-2547154

PATIENT
  Age: 68 Year
  Sex: Male
  Weight: 76 kg

DRUGS (8)
  1. NAIXAN [NAPROXEN] [Concomitant]
     Active Substance: NAPROXEN
     Route: 065
     Dates: start: 20191123, end: 20191129
  2. ETOPOSIDE. [Suspect]
     Active Substance: ETOPOSIDE
     Indication: SMALL CELL LUNG CANCER
     Route: 041
     Dates: start: 20191120, end: 20191122
  3. OXYCODONE [Concomitant]
     Active Substance: OXYCODONE
     Route: 065
     Dates: start: 20191118, end: 20191129
  4. CARBOPLATIN. [Suspect]
     Active Substance: CARBOPLATIN
     Indication: SMALL CELL LUNG CANCER
     Dosage: DOSAGE IS UNCERTAIN.
     Route: 041
     Dates: start: 20191120, end: 20191120
  5. SYMPROIC [Concomitant]
     Active Substance: NALDEMEDINE
     Route: 065
     Dates: start: 20191121, end: 20191129
  6. TECENTRIQ [Suspect]
     Active Substance: ATEZOLIZUMAB
     Indication: SMALL CELL LUNG CANCER
     Route: 041
     Dates: start: 20191120, end: 20191120
  7. ZINC. [Concomitant]
     Active Substance: ZINC
     Route: 065
     Dates: start: 20191118, end: 20191129
  8. NAIXAN [NAPROXEN] [Concomitant]
     Active Substance: NAPROXEN
     Route: 065
     Dates: start: 20191123, end: 20191129

REACTIONS (6)
  - Small cell lung cancer [Fatal]
  - Anaemia [Recovered/Resolved]
  - Tumour lysis syndrome [Fatal]
  - Pyrexia [Unknown]
  - White blood cell count decreased [Not Recovered/Not Resolved]
  - Platelet count decreased [Unknown]

NARRATIVE: CASE EVENT DATE: 20191122
